FAERS Safety Report 5711241-5 (Version None)
Quarter: 2008Q2

REPORT INFORMATION
  Report Type: 
  Country: None (occurrence: None)
  Receive Date: 20080414
  Receipt Date: 20080401
  Transmission Date: 20081010
  Serious: Yes (Hospitalization)
  Sender: FDA-Public Use
  Company Number: 2008SP006708

PATIENT
  Age: 71 Year
  Sex: Female

DRUGS (5)
  1. TEMODAL [Suspect]
     Indication: ANAPLASTIC ASTROCYTOMA
     Dosage: 180 MCG
     Dates: start: 20080202, end: 20080208
  2. TEMODAL [Suspect]
     Indication: GLIOBLASTOMA
     Dosage: 180 MCG
     Dates: start: 20080202, end: 20080208
  3. DEXAMETHASONE [Suspect]
     Indication: DRUG USE FOR UNKNOWN INDICATION
     Dosage: 8 MG; PO; 4 MG; PO
     Route: 048
     Dates: start: 20080131
  4. DEXAMETHASONE [Suspect]
     Indication: DRUG USE FOR UNKNOWN INDICATION
     Dosage: 8 MG; PO; 4 MG; PO
     Route: 048
     Dates: start: 20080202
  5. HYDROCORTISONE [Suspect]
     Indication: DRUG USE FOR UNKNOWN INDICATION

REACTIONS (3)
  - GAIT DISTURBANCE [None]
  - MYOPATHY STEROID [None]
  - OEDEMA PERIPHERAL [None]
